FAERS Safety Report 5513789-5 (Version None)
Quarter: 2007Q4

REPORT INFORMATION
  Report Type: 
  Country: None (occurrence: None)
  Receive Date: 20071113
  Receipt Date: 20071105
  Transmission Date: 20080405
  Serious: Yes (Other)
  Sender: FDA-Public Use
  Company Number: PHBS2007JP17858

PATIENT
  Age: 36 Year
  Sex: Female

DRUGS (6)
  1. TEGRETOL [Suspect]
     Indication: EPILEPSY
     Dosage: UP TO 700 MG/DAY
  2. TEGRETOL [Suspect]
     Dosage: 900 MG/DAY
  3. ZONISAMIDE [Concomitant]
  4. PHENYTOIN [Concomitant]
  5. CLOBAZAM [Concomitant]
  6. VALPROATE SODIUM [Concomitant]

REACTIONS (4)
  - ANAPHYLACTIC SHOCK [None]
  - DIZZINESS [None]
  - SOMNOLENCE [None]
  - SUICIDE ATTEMPT [None]
